FAERS Safety Report 21231560 (Version 1)
Quarter: 2022Q3

REPORT INFORMATION
  Report Type: Spontaneous
  Country: DE (occurrence: DE)
  Receive Date: 20220819
  Receipt Date: 20220819
  Transmission Date: 20221026
  Serious: Yes (Disabling)
  Sender: FDA-Public Use
  Company Number: DE-LEO Pharma-344808

PATIENT
  Sex: Male

DRUGS (5)
  1. DAIVOBET [Suspect]
     Active Substance: BETAMETHASONE DIPROPIONATE\CALCIPOTRIENE
     Indication: Psoriasis
     Dosage: 50 MICROGRAM/G + 0.5 MG/G
  2. BETAMETHASONE VALERATE\FUSIDIC ACID [Suspect]
     Active Substance: BETAMETHASONE VALERATE\FUSIDIC ACID
     Indication: Peripheral swelling
     Dosage: 20 MG/G + 1 MG/G APPLIED ON FOOT AND LEG UP TO APPROX. 20-30 CM ABOVE THE ANKLE
     Route: 003
  3. BETAMETHASONE VALERATE\FUSIDIC ACID [Suspect]
     Active Substance: BETAMETHASONE VALERATE\FUSIDIC ACID
     Indication: Dermatitis
     Dosage: 20 MG/G + 1 MG/G APPLIED ON FOOT AND LEG UP TO APPROX. 20-30 CM ABOVE THE ANKLE
     Route: 003
  4. Unacid [Concomitant]
     Indication: Peripheral swelling
     Dosage: NOT REPORTED
     Route: 048
  5. Unacid [Concomitant]
     Indication: Dermatitis
     Dosage: NOT REPORTED
     Route: 048

REACTIONS (4)
  - Drug ineffective for unapproved indication [Unknown]
  - Peripheral swelling [Not Recovered/Not Resolved]
  - Dermatitis [Not Recovered/Not Resolved]
  - Product use in unapproved indication [Unknown]
